FAERS Safety Report 19746563 (Version 1)
Quarter: 2021Q3

REPORT INFORMATION
  Report Type: Spontaneous
  Country: US (occurrence: US)
  Receive Date: 20210825
  Receipt Date: 20210825
  Transmission Date: 20211014
  Serious: No
  Sender: FDA-Public Use
  Company Number: US-TEVA-2021-US-1939450

PATIENT
  Age: 18 Year
  Sex: Female

DRUGS (3)
  1. AJOVY [Suspect]
     Active Substance: FREMANEZUMAB-VFRM
     Dosage: 225 MG / 1.5 ML
     Route: 065
     Dates: start: 20210730
  2. AJOVY [Suspect]
     Active Substance: FREMANEZUMAB-VFRM
     Indication: MIGRAINE
     Dosage: 225 MG / 1.5 ML
     Route: 065
     Dates: start: 2021
  3. AJOVY [Suspect]
     Active Substance: FREMANEZUMAB-VFRM
     Dosage: 225 MG / 1.5 ML
     Route: 065
     Dates: start: 202106

REACTIONS (6)
  - Eye pain [Unknown]
  - Drug dose omission by device [Unknown]
  - Ocular hyperaemia [Unknown]
  - Accidental exposure to product [Unknown]
  - Device leakage [Unknown]
  - Eye irritation [Unknown]

NARRATIVE: CASE EVENT DATE: 20210730
